FAERS Safety Report 9138820 (Version 1)
Quarter: 2013Q1

REPORT INFORMATION
  Report Type: Other
  Country: US (occurrence: US)
  Receive Date: 20130305
  Receipt Date: 20130305
  Transmission Date: 20140127
  Serious: Yes (Other)
  Sender: FDA-Public Use
  Company Number: US-ENDO PHARMACEUTICALS INC.-PERC20120146

PATIENT
  Sex: Male
  Weight: 118.49 kg

DRUGS (12)
  1. PERCOCET [Suspect]
     Indication: PAIN
     Dosage: UNKNOWN
     Route: 048
     Dates: start: 2007, end: 2010
  2. REMICADE [Suspect]
     Indication: RHEUMATOID ARTHRITIS
     Dates: start: 2009, end: 2010
  3. REMICADE [Suspect]
     Dates: start: 2010
  4. FOLIC ACID [Concomitant]
     Indication: RHEUMATOID ARTHRITIS
     Route: 048
  5. ZOLOFT [Concomitant]
     Indication: PRODUCT USED FOR UNKNOWN INDICATION
     Dosage: UNKNOWN
     Route: 048
  6. INSULIN [Concomitant]
     Indication: DIABETES MELLITUS
     Route: 058
     Dates: start: 1999
  7. GLUCOVANCE [Concomitant]
     Indication: DIABETES MELLITUS
     Dosage: UNKNOWN
     Route: 048
     Dates: start: 1999
  8. METHOTREXATE [Concomitant]
     Indication: RHEUMATOID ARTHRITIS
     Route: 048
  9. CRESTOR [Concomitant]
     Indication: BLOOD CHOLESTEROL INCREASED
     Route: 048
     Dates: start: 2011
  10. UNIVASC [Concomitant]
     Indication: HYPERTENSION
     Route: 048
  11. ATARAX [Concomitant]
     Indication: SLEEP DISORDER
     Dosage: 25 MG
     Route: 048
  12. FLEXERIL [Concomitant]
     Indication: PAIN
     Route: 048
     Dates: start: 2007

REACTIONS (3)
  - Drug dependence [Unknown]
  - Fibromyalgia [Not Recovered/Not Resolved]
  - Movement disorder [Not Recovered/Not Resolved]
